FAERS Safety Report 19959407 (Version 1)
Quarter: 2021Q4

REPORT INFORMATION
  Report Type: Report from Study
  Country: DE (occurrence: DE)
  Receive Date: 20211015
  Receipt Date: 20211015
  Transmission Date: 20220303
  Serious: Yes (Hospitalization)
  Sender: FDA-Public Use
  Company Number: DE-SA-2020SA306619

PATIENT
  Age: 71 Year
  Sex: Female

DRUGS (18)
  1. SULFASALAZINE [Suspect]
     Active Substance: SULFASALAZINE
     Indication: Rheumatoid arthritis
     Dosage: 2 DF, 2X/DAY
     Route: 048
     Dates: start: 20210216
  2. SULFASALAZINE [Suspect]
     Active Substance: SULFASALAZINE
     Indication: Rheumatoid arthritis
     Dosage: 1000 MG, 2X/DAY
     Route: 048
     Dates: start: 199608, end: 20201010
  3. LEFLUNOMIDE [Suspect]
     Active Substance: LEFLUNOMIDE
     Indication: Rheumatoid arthritis
     Dosage: 15 MG, QD
     Route: 048
     Dates: start: 20180208, end: 20210709
  4. SARILUMAB [Suspect]
     Active Substance: SARILUMAB
     Indication: Rheumatoid arthritis
     Dosage: 200 MG, CYCLIC (QOW)
     Route: 058
     Dates: start: 20200820
  5. PREDNISOLONE [Concomitant]
     Active Substance: PREDNISOLONE
     Indication: Rheumatoid arthritis
     Dosage: 5 MG, 1X/DAY (QD)
     Route: 048
     Dates: start: 1996
  6. AMLODIPINE [Concomitant]
     Active Substance: AMLODIPINE BESYLATE
     Indication: Hypertonia
     Dosage: 10 MG, 1X/DAY (QD)
     Route: 048
     Dates: start: 20070227
  7. PROLIA [Concomitant]
     Active Substance: DENOSUMAB
     Indication: Osteoporosis
     Dosage: 60 MG, CYCLIC (Q6M)
     Dates: start: 20100128
  8. LYRICA [Concomitant]
     Active Substance: PREGABALIN
     Indication: Neuralgia
     Dosage: 150 MG, 2X/DAY (BID)
     Route: 048
     Dates: start: 20080417
  9. CALCIUM VERLA D [Concomitant]
     Indication: Osteoporosis
     Dosage: 600 MG, 1X/DAY (QD)
     Route: 048
     Dates: start: 20100128
  10. VITAMIN E FORTE [Concomitant]
     Indication: Hypovitaminosis
     Dosage: 400 IU, 1X/DAY (QD)
     Route: 048
     Dates: start: 20051010
  11. METOPROLOL SUCCINATE [Concomitant]
     Active Substance: METOPROLOL SUCCINATE
     Indication: Hypertonia
     Dosage: 47.5 MG, 1X/DAY
     Route: 048
     Dates: start: 20171026
  12. FENTANYL [Concomitant]
     Active Substance: FENTANYL
     Indication: Spinal pain
     Dosage: 75 UG, FREQ:3 D (ONE PATCH EVERY THREE DAYS)
     Route: 062
     Dates: start: 20080417
  13. ZOLPIDEM [Concomitant]
     Active Substance: ZOLPIDEM TARTRATE
     Indication: Sleep disorder
     Dosage: 10 MG, 1X/DAY (QD)
     Dates: start: 20051010
  14. CHOLECALCIFEROL [Concomitant]
     Active Substance: CHOLECALCIFEROL
     Indication: Osteoporosis
     Dosage: 2000 IU, CYCLIC (QOW)
     Route: 048
     Dates: start: 20100128
  15. OMEPRAZOLE [Concomitant]
     Active Substance: OMEPRAZOLE
     Indication: Dyspepsia
     Dosage: 40 MG, 2X/DAY (Q12H)
     Dates: start: 20070227
  16. ETORICOXIB [Concomitant]
     Active Substance: ETORICOXIB
     Indication: Arthralgia
     Dosage: 60 MG, FREQ:AS NECESSARY (PRN)
     Route: 048
     Dates: start: 1996
  17. METAMIZOLE SODIUM [Concomitant]
     Active Substance: METAMIZOLE SODIUM
     Indication: Analgesic therapy
     Dosage: 500 MG, FREQ: AS NECESSARY (PRN)
     Route: 048
     Dates: start: 1996
  18. MCP [Concomitant]
     Active Substance: METOCLOPRAMIDE HYDROCHLORIDE
     Indication: Nausea
     Dosage: 10 MG, 4X/DAY (QID)
     Route: 048
     Dates: start: 20150113

REACTIONS (2)
  - Bursitis [Recovered/Resolved]
  - Anaemia [Not Recovered/Not Resolved]

NARRATIVE: CASE EVENT DATE: 20210816
